FAERS Safety Report 9915302 (Version 1)
Quarter: 2014Q1

REPORT INFORMATION
  Report Type: Spontaneous
  Country: FR (occurrence: FR)
  Receive Date: 20140221
  Receipt Date: 20140221
  Transmission Date: 20141002
  Serious: Yes (Hospitalization)
  Sender: FDA-Public Use
  Company Number: PHHY2014FR018344

PATIENT
  Age: 38 Year
  Sex: Male

DRUGS (7)
  1. OMALIZUMAB [Suspect]
     Indication: ASTHMA
     Dosage: 300 MG, TWICE A MONTH
  2. FLUTICASONE [Suspect]
     Indication: ASTHMA
  3. FLUTICASONE [Suspect]
     Indication: EOSINOPHILIA
  4. SALMETEROL [Suspect]
     Indication: ASTHMA
     Dosage: 50 UG, QD
  5. SALMETEROL [Suspect]
     Indication: EOSINOPHILIA
  6. CORTICOSTEROID NOS [Suspect]
     Indication: ASTHMA
     Dosage: 40 MG, DAILY
     Route: 048
  7. CORTICOSTEROID NOS [Suspect]
     Indication: EOSINOPHILIA

REACTIONS (3)
  - Sleep disorder [Unknown]
  - Pulmonary function test decreased [Unknown]
  - Therapeutic response decreased [Unknown]
